FAERS Safety Report 6145159-3 (Version None)
Quarter: 2009Q2

REPORT INFORMATION
  Report Type: 
  Country: None (occurrence: None)
  Receive Date: 20090401
  Receipt Date: 20090304
  Transmission Date: 20091009
  Serious: Yes (Hospitalization)
  Sender: FDA-Public Use
  Company Number: 227060

PATIENT
  Age: 62 Year
  Sex: Male

DRUGS (10)
  1. LEUCOVORIN CALCIUM [Suspect]
     Indication: COLORECTAL CANCER METASTATIC
     Dosage: 800 MG, 1 IN 14 DAYS, INTRAVENOUS
     Route: 042
     Dates: start: 20080605, end: 20080926
  2. IRINOTECAN HCL [Suspect]
     Indication: COLORECTAL CANCER METASTATIC
     Dosage: 360 MG, 1 IN 14 DAYS, INTRAVENOUS; 360 (1 IN 14 DAYS) INTRAVENOUS
     Route: 042
     Dates: start: 20080605, end: 20080924
  3. FLUOROURACIL [Suspect]
     Indication: COLORECTAL CANCER METASTATIC
     Dosage: 5600 MG, 1 IN 14 DAYS, INTRAVENOUS
     Route: 042
     Dates: start: 20080506, end: 20080926
  4. (CETUXIMAB) [Suspect]
     Indication: COLORECTAL CANCER METASTATIC
     Dosage: 500 MG, 1 IN 14 DAYS, INTRAVENOUS
     Route: 042
     Dates: start: 20080605, end: 20081001
  5. DEXAMETHASONE 4MG TAB [Concomitant]
  6. (TAMSULOSIN HYDROCHLORIDE) [Concomitant]
  7. AMITRIPTYLINE HCL [Concomitant]
  8. (DIMETINDENE MALEATE) [Concomitant]
  9. RANITIDINE [Concomitant]
  10. CIMETIDINE HCL [Concomitant]

REACTIONS (6)
  - ABDOMINAL PAIN [None]
  - ANOREXIA [None]
  - COLORECTAL CANCER METASTATIC [None]
  - DISEASE PROGRESSION [None]
  - GASTROINTESTINAL HYPOMOTILITY [None]
  - METASTASES TO LIVER [None]
